FAERS Safety Report 7201882-0 (Version None)
Quarter: 2010Q4

REPORT INFORMATION
  Report Type: 
  Country: None (occurrence: None)
  Receive Date: 20101229
  Receipt Date: 20101221
  Transmission Date: 20110411
  Serious: Yes (Other)
  Sender: FDA-Public Use
  Company Number: CA-JNJFOC-20101208254

PATIENT
  Sex: Female
  Weight: 104 kg

DRUGS (6)
  1. REMICADE [Suspect]
     Indication: PRODUCT USED FOR UNKNOWN INDICATION
     Route: 042
  2. REMICADE [Suspect]
     Route: 042
  3. PREDNISONE [Suspect]
     Indication: PRODUCT USED FOR UNKNOWN INDICATION
  4. WELLBUTRIN [Concomitant]
  5. PREVACID [Concomitant]
  6. TYLENOL W/ CODEINE [Concomitant]

REACTIONS (2)
  - CUSHING'S SYNDROME [None]
  - SINUSITIS [None]
